FAERS Safety Report 20510767 (Version 1)
Quarter: 2022Q1

REPORT INFORMATION
  Report Type: Spontaneous
  Country: FR (occurrence: FR)
  Receive Date: 20220224
  Receipt Date: 20220224
  Transmission Date: 20220423
  Serious: Yes (Hospitalization)
  Sender: FDA-Public Use
  Company Number: FR-GW PHARMA-202112FRGW06336

PATIENT

DRUGS (10)
  1. EPIDIOLEX [Suspect]
     Active Substance: CANNABIDIOL
     Indication: Lennox-Gastaut syndrome
     Dosage: 19.4 MILLIGRAM/KILOGRAM, QD (DOSE INCREASED)
     Route: 048
     Dates: start: 20190318, end: 20200109
  2. EPIDIOLEX [Suspect]
     Active Substance: CANNABIDIOL
     Dosage: 15 MILLIGRAM/KILOGRAM, QD (DOSE REDUCED)
     Route: 048
     Dates: start: 20200110, end: 20200116
  3. EPIDIOLEX [Suspect]
     Active Substance: CANNABIDIOL
     Dosage: 11.2 MILLIGRAM/KILOGRAM, QD(DOSE REDUCED)
     Route: 048
     Dates: start: 20200117, end: 20200318
  4. CLOBAZAM [Concomitant]
     Active Substance: CLOBAZAM
     Indication: Product used for unknown indication
     Dosage: UNK
     Route: 065
     Dates: start: 20191218
  5. MIDAZOLAM HYDROCHLORIDE [Concomitant]
     Active Substance: MIDAZOLAM HYDROCHLORIDE
     Indication: Status epilepticus
     Dosage: UNK
     Route: 048
     Dates: start: 2016
  6. MIDAZOLAM HYDROCHLORIDE [Concomitant]
     Active Substance: MIDAZOLAM HYDROCHLORIDE
     Dosage: 7.5 MG
     Route: 048
     Dates: start: 20200108, end: 20200108
  7. LAMICTAL [Concomitant]
     Active Substance: LAMOTRIGINE
     Indication: Epilepsy
     Dosage: 60 MILLIGRAM, QD
     Route: 048
     Dates: start: 2016
  8. ZONEGRAN [Concomitant]
     Active Substance: ZONISAMIDE
     Indication: Epilepsy
     Dosage: 75 MILLIGRAM, QD
     Route: 048
     Dates: start: 2017, end: 20190605
  9. ZONEGRAN [Concomitant]
     Active Substance: ZONISAMIDE
     Dosage: 50 MILLIGRAM, QD
     Route: 048
     Dates: start: 20190606, end: 20191205
  10. ZONEGRAN [Concomitant]
     Active Substance: ZONISAMIDE
     Dosage: 75 MILLIGRAM, QD
     Route: 048
     Dates: start: 20191206

REACTIONS (2)
  - Status epilepticus [Recovered/Resolved]
  - Seizure [Unknown]

NARRATIVE: CASE EVENT DATE: 20191218
